FAERS Safety Report 8756089 (Version 2)
Quarter: 2012Q4

REPORT INFORMATION
  Report Type: 
  Country: US (occurrence: US)
  Receive Date: 20120828
  Receipt Date: 20121016
  Transmission Date: 20130627
  Serious: No
  Sender: FDA-Public Use
  Company Number: US-PFIZER INC-2012207508

PATIENT
  Sex: Male

DRUGS (9)
  1. DEPO-TESTOSTERONE [Suspect]
     Indication: BLOOD TESTOSTERONE DECREASED
     Dosage: 1 ml once every 2 weeks
     Dates: start: 20120618
  2. DEPO-TESTOSTERONE [Suspect]
     Indication: DECREASED INTEREST
  3. CITRACAL + D [Concomitant]
     Indication: BLOOD CALCIUM DECREASED
     Dosage: 630mg/500 IU, two times a day
  4. ACETYLSALICYLIC ACID [Concomitant]
     Dosage: 81 mg, daily
  5. OMEPRAZOLE [Concomitant]
     Indication: GASTROOESOPHAGEAL REFLUX DISEASE
     Dosage: 20 mg, daily
  6. PAROXETINE [Concomitant]
     Indication: DEPRESSION
     Dosage: 10 mg, daily
  7. PROPRANOLOL [Concomitant]
     Indication: PALPITATIONS
     Dosage: 80 mg, three times a day
  8. PROPRANOLOL [Concomitant]
     Indication: ESSENTIAL TREMOR
  9. DEXTROAMPHETAMINE [Concomitant]
     Indication: AMNESIA
     Dosage: 10 mg, two times a day

REACTIONS (1)
  - Injection site pain [Unknown]
